FAERS Safety Report 5199555-1 (Version None)
Quarter: 2006Q4

REPORT INFORMATION
  Report Type: 
  Country: None (occurrence: None)
  Receive Date: 20061229
  Receipt Date: 20061222
  Transmission Date: 20070319
  Serious: No
  Sender: FDA-Public Use
  Company Number: 234269

PATIENT
  Age: 11 Year
  Sex: Female
  Weight: 49.2 kg

DRUGS (4)
  1. NUTROPIN AQ [Suspect]
     Indication: RENAL FAILURE CHRONIC
     Dosage: 1.2 MG, 7/WEEK,
     Dates: start: 20031203, end: 20060303
  2. SYNTHROID [Concomitant]
  3. CORTEF [Concomitant]
  4. DDAVP (DESMOPRESSIN ACETATE) [Concomitant]

REACTIONS (3)
  - CRANIOPHARYNGIOMA [None]
  - HYPOACUSIS [None]
  - VIRAL INFECTION [None]
